FAERS Safety Report 23510942 (Version 2)
Quarter: 2025Q2

REPORT INFORMATION
  Report Type: Spontaneous
  Country: PT (occurrence: PT)
  Receive Date: 20240212
  Receipt Date: 20250607
  Transmission Date: 20250717
  Serious: Yes (Hospitalization, Other)
  Sender: AUROBINDO
  Company Number: PT-SA-2023SA288941

PATIENT
  Age: 67 Year
  Sex: Male

DRUGS (1)
  1. CLOPIDOGREL BISULFATE [Suspect]
     Active Substance: CLOPIDOGREL BISULFATE
     Indication: Atherosclerosis prophylaxis
     Route: 065

REACTIONS (2)
  - Cerebral infarction [Recovering/Resolving]
  - Drug resistance [Unknown]
